FAERS Safety Report 5639837-X (Version None)
Quarter: 2008Q1

REPORT INFORMATION
  Report Type: 
  Country: None (occurrence: None)
  Receive Date: 20080226
  Receipt Date: 20080226
  Transmission Date: 20080703
  Serious: No
  Sender: FDA-Public Use
  Company Number: None

PATIENT
  Age: 62 Year
  Sex: Female
  Weight: 68.0396 kg

DRUGS (2)
  1. COREG [Suspect]
     Indication: CARDIOMYOPATHY
     Dosage: 12.5MG PO
     Route: 048
     Dates: start: 20080101
  2. COREG [Suspect]
     Indication: CARDIOMYOPATHY
     Dosage: 12.5MG PO
     Route: 048
     Dates: start: 20080201

REACTIONS (1)
  - PRURITUS [None]
